FAERS Safety Report 8163168-X (Version None)
Quarter: 2012Q1

REPORT INFORMATION
  Report Type: 
  Country: None (occurrence: None)
  Receive Date: 20120224
  Receipt Date: 20110217
  Transmission Date: 20120608
  Serious: No
  Sender: FDA-Public Use
  Company Number: US-PFIZER INC-K201100190

PATIENT
  Age: 80 Year
  Sex: Male

DRUGS (2)
  1. FLECTOR [Suspect]
     Indication: GROIN PAIN
     Dosage: 1 PATCH, UNK
     Route: 061
  2. FLECTOR [Suspect]
     Indication: BACK PAIN

REACTIONS (2)
  - PAIN [None]
  - DYSURIA [None]
